FAERS Safety Report 6828426-7 (Version None)
Quarter: 2010Q3

REPORT INFORMATION
  Report Type: 
  Country: None (occurrence: None)
  Receive Date: 20100709
  Receipt Date: 20070208
  Transmission Date: 20110219
  Serious: No
  Sender: FDA-Public Use
  Company Number: US-PFIZER INC-2007011045

PATIENT
  Sex: Female
  Weight: 63.5 kg

DRUGS (2)
  1. CHANTIX [Suspect]
     Indication: EX-TOBACCO USER
     Route: 048
     Dates: start: 20070203, end: 20070208
  2. LISINOPRIL [Concomitant]
     Route: 048

REACTIONS (3)
  - CARDIAC FLUTTER [None]
  - CHEST PAIN [None]
  - MIGRAINE [None]
